FAERS Safety Report 24387711 (Version 1)
Quarter: 2024Q4

REPORT INFORMATION
  Report Type: Spontaneous
  Country: US (occurrence: None)
  Receive Date: 20241001
  Receipt Date: 20241001
  Transmission Date: 20250114
  Serious: No
  Sender: Public
  Company Number: None

PATIENT
  Age: 67 Year
  Sex: Male
  Weight: 83 kg

DRUGS (1)
  1. PEMETREXED [Suspect]
     Active Substance: PEMETREXED
     Indication: Non-small cell lung cancer metastatic
     Dosage: 1000.00 MG ONCE INTRAVENOUS?
     Route: 042
     Dates: start: 20231115, end: 20231213

REACTIONS (9)
  - Leukopenia [None]
  - Neutropenia [None]
  - Rash [None]
  - Skin exfoliation [None]
  - Stomatitis [None]
  - Anaemia [None]
  - Mucosal inflammation [None]
  - Palmar-plantar erythrodysaesthesia syndrome [None]
  - Platelet count decreased [None]

NARRATIVE: CASE EVENT DATE: 20231205
